FAERS Safety Report 9668669 (Version 3)
Quarter: 2013Q4

REPORT INFORMATION
  Report Type: Spontaneous
  Country: PT (occurrence: PT)
  Receive Date: 20131105
  Receipt Date: 20131108
  Transmission Date: 20140711
  Serious: Yes (Death, Hospitalization)
  Sender: FDA-Public Use
  Company Number: PT-BRISTOL-MYERS SQUIBB COMPANY-17312455

PATIENT
  Sex: Female

DRUGS (1)
  1. YERVOY [Suspect]
     Dosage: 4 IPILIMUMB INFUSIONS (22AUG/ 12SET/ 3OCT, 24OCT 2012)
     Dates: start: 20120822, end: 20121024

REACTIONS (2)
  - Malignant neoplasm progression [Fatal]
  - Pericardial effusion [Fatal]
